FAERS Safety Report 15042934 (Version 4)
Quarter: 2018Q3

REPORT INFORMATION
  Report Type: Report from Study
  Country: UG (occurrence: UG)
  Receive Date: 20180621
  Receipt Date: 20180709
  Transmission Date: 20181010
  Serious: Yes (Hospitalization)
  Sender: FDA-Public Use
  Company Number: UG-VIIV HEALTHCARE LIMITED-UG2018GSK108367

PATIENT
  Age: 18 Year
  Sex: Female
  Weight: 58 kg

DRUGS (11)
  1. FOLIC ACID. [Concomitant]
     Active Substance: FOLIC ACID
     Indication: HAEMOGLOBIN DECREASED
     Dosage: UNK UNK, QD
     Route: 048
     Dates: start: 20180510, end: 20180605
  2. FERROUS SULFATE. [Concomitant]
     Active Substance: FERROUS SULFATE
     Indication: HAEMOGLOBIN DECREASED
     Dosage: UNK UNK, QD
     Route: 048
     Dates: start: 20180510, end: 20180605
  3. TETANUS TOXOID [Concomitant]
     Active Substance: TETANUS TOXOIDS
     Indication: ANTIBIOTIC PROPHYLAXIS
     Dosage: UNK, SINGLE
     Route: 030
     Dates: start: 20180508, end: 20180508
  4. MEBENDAZOLE. [Concomitant]
     Active Substance: MEBENDAZOLE
     Indication: PROPHYLAXIS
     Dosage: UNK, SINGLE
     Route: 048
     Dates: start: 20180510, end: 20180510
  5. EMTRICITABINE + TENOFOVIR [Suspect]
     Active Substance: EMTRICITABINE\TENOFOVIR
     Indication: HIV INFECTION
     Dosage: 500 MG, QD
     Route: 048
     Dates: start: 20180514
  6. AMOXICILLIN. [Concomitant]
     Active Substance: AMOXICILLIN
     Indication: UPPER RESPIRATORY TRACT INFECTION
     Dosage: UNK UNK, TID
     Route: 048
     Dates: start: 20180510, end: 20180515
  7. LINCTUS COUGH MEDICINE (NOS) [Concomitant]
     Indication: UPPER RESPIRATORY TRACT INFECTION
     Dosage: UNK UNK, TID
     Route: 048
     Dates: start: 20180530, end: 20180605
  8. PYRIMETHAMINE + SULFADOXINE [Concomitant]
     Indication: MALARIA PROPHYLAXIS
     Dosage: 1 DF, SINGLE
     Route: 048
     Dates: start: 20180510
  9. DOLUTEGRAVIR [Suspect]
     Active Substance: DOLUTEGRAVIR
     Indication: HIV INFECTION
     Dosage: 50 MG, QD
     Route: 048
     Dates: start: 20180514
  10. PYRIMETHAMINE + SULFADOXINE [Concomitant]
     Indication: MALARIA PROPHYLAXIS
     Dosage: UNK, SINGLE
     Route: 048
     Dates: start: 20180510, end: 20180510
  11. COTRIMOXAZOLE [Concomitant]
     Active Substance: SULFAMETHOXAZOLE\TRIMETHOPRIM
     Indication: ANTIFUNGAL PROPHYLAXIS
     Dosage: UNK
     Route: 048
     Dates: start: 20180508, end: 20180605

REACTIONS (2)
  - Preterm premature rupture of membranes [Recovered/Resolved]
  - Preterm premature rupture of membranes [Recovered/Resolved]

NARRATIVE: CASE EVENT DATE: 20180606
